FAERS Safety Report 5918234-3 (Version None)
Quarter: 2008Q3

REPORT INFORMATION
  Report Type: 
  Country: None (occurrence: None)
  Receive Date: 20080909
  Receipt Date: 20060701
  Transmission Date: 20090109
  Serious: Yes (Other)
  Sender: FDA-Public Use
  Company Number: 163-20785-06070230

PATIENT

DRUGS (1)
  1. THALOMID [Suspect]
     Indication: MYELODYSPLASTIC SYNDROME
     Dosage: 200 MG X 1WK, THEN INCREASED BY 50 MG ON A WEEKLY BASIS AS TOLERATED UP TO 1000 MG, ORAL
     Route: 048
     Dates: start: 20020205, end: 20050124

REACTIONS (3)
  - HAEMOGLOBIN DECREASED [None]
  - PACKED RED BLOOD CELL TRANSFUSION [None]
  - PLATELET COUNT DECREASED [None]
